FAERS Safety Report 8255489-7 (Version None)
Quarter: 2012Q2

REPORT INFORMATION
  Report Type: 
  Country: None (occurrence: None)
  Receive Date: 20120403
  Receipt Date: 20120327
  Transmission Date: 20120825
  Serious: Yes (Hospitalization)
  Sender: FDA-Public Use
  Company Number: FR-SANOFI-AVENTIS-2012SA020914

PATIENT
  Age: 75 Year
  Sex: Female
  Weight: 68 kg

DRUGS (7)
  1. NEXIUM [Concomitant]
  2. LOVENOX [Suspect]
     Indication: THROMBOSIS PROPHYLAXIS
     Route: 042
     Dates: start: 20120224, end: 20120302
  3. POLYETHYLENE GLYCOL [Concomitant]
  4. XANAX [Concomitant]
  5. VASOBRAL [Concomitant]
  6. ACETAMINOPHEN [Concomitant]
     Dates: start: 20120210
  7. ZESTRIL [Concomitant]

REACTIONS (2)
  - CHOLESTASIS [None]
  - CYTOLYTIC HEPATITIS [None]
